FAERS Safety Report 7308346-4 (Version None)
Quarter: 2011Q1

REPORT INFORMATION
  Report Type: 
  Country: None (occurrence: None)
  Receive Date: 20110223
  Receipt Date: 20110209
  Transmission Date: 20110831
  Serious: Yes (Hospitalization)
  Sender: FDA-Public Use
  Company Number: B0700357A

PATIENT
  Age: 72 Year
  Sex: Female

DRUGS (1)
  1. OMACOR [Suspect]
     Indication: HYPERTRIGLYCERIDAEMIA
     Dosage: 2000MG TWICE PER DAY
     Route: 048
     Dates: start: 20100414

REACTIONS (1)
  - SUBARACHNOID HAEMORRHAGE [None]
